FAERS Safety Report 18955223 (Version 1)
Quarter: 2021Q1

REPORT INFORMATION
  Report Type: Spontaneous
  Country: IT (occurrence: IT)
  Receive Date: 20210302
  Receipt Date: 20210302
  Transmission Date: 20210420
  Serious: Yes (Death, Other)
  Sender: FDA-Public Use
  Company Number: IT-AMGEN-ITASP2021028619

PATIENT

DRUGS (3)
  1. FILGRASTIM [Suspect]
     Active Substance: FILGRASTIM
     Indication: APLASTIC ANAEMIA
     Dosage: 5 MICROGRAM/KILOGRAM, QD (DAY 1?90)
     Route: 065
  2. ANTILYMPHOCYTE GLOBULIN [Concomitant]
     Active Substance: THYMOCYTE IMMUNE GLOBULIN NOS
     Dosage: 15 MILLIGRAM/KILOGRAM, QD (DAY 1 TO 5)
     Route: 065
  3. CYCLOSPORIN A [Concomitant]
     Active Substance: CYCLOSPORINE
     Dosage: 5 MILLIGRAM/KILOGRAM, QD (DAY 1?180)
     Route: 048

REACTIONS (3)
  - Death [Fatal]
  - Infection [Fatal]
  - Therapy partial responder [Unknown]
